FAERS Safety Report 9637464 (Version 1)
Quarter: 2013Q4

REPORT INFORMATION
  Report Type: Spontaneous
  Country: IT (occurrence: IT)
  Receive Date: 20131022
  Receipt Date: 20131022
  Transmission Date: 20140711
  Serious: Yes (Hospitalization)
  Sender: FDA-Public Use
  Company Number: IT-JNJFOC-20131012007

PATIENT
  Sex: Female

DRUGS (6)
  1. SPORANOX [Suspect]
     Indication: ANTIFUNGAL PROPHYLAXIS
     Route: 065
  2. VELCADE [Suspect]
     Indication: PRODUCT USED FOR UNKNOWN INDICATION
     Route: 064
  3. ACYCLOVIR [Concomitant]
     Indication: ANTIVIRAL PROPHYLAXIS
     Route: 065
  4. ZYLORIC [Concomitant]
     Indication: PROPHYLAXIS
     Route: 065
  5. BACTRIM [Concomitant]
     Indication: ANTIBIOTIC PROPHYLAXIS
     Route: 065
  6. LANSOX [Concomitant]
     Indication: HAEMORRHAGE PROPHYLAXIS
     Route: 065

REACTIONS (3)
  - Renal failure acute [Recovered/Resolved]
  - Anaemia [Unknown]
  - Hydronephrosis [Unknown]
